FAERS Safety Report 6969619-8 (Version None)
Quarter: 2010Q3

REPORT INFORMATION
  Report Type: 
  Country: None (occurrence: None)
  Receive Date: 20100907
  Receipt Date: 20100831
  Transmission Date: 20110219
  Serious: Yes (Other)
  Sender: FDA-Public Use
  Company Number: JP-BRISTOL-MYERS SQUIBB COMPANY-14868335

PATIENT
  Age: 56 Year
  Sex: Female

DRUGS (2)
  1. TAXOL [Suspect]
     Indication: BREAST CANCER
     Route: 041
     Dates: start: 20080101, end: 20081201
  2. TRASTUZUMAB [Concomitant]
     Indication: BREAST CANCER
     Dosage: INJECTION
     Route: 042
     Dates: start: 20060401

REACTIONS (3)
  - MACULAR OEDEMA [None]
  - METAMORPHOPSIA [None]
  - VISUAL ACUITY REDUCED [None]
